FAERS Safety Report 8839425 (Version 1)
Quarter: 2012Q4

REPORT INFORMATION
  Report Type: Spontaneous
  Country: US (occurrence: None)
  Receive Date: 20121012
  Receipt Date: 20121012
  Transmission Date: 20130627
  Serious: Yes (Disabling)
  Sender: FDA-Public Use
  Company Number: None

PATIENT
  Age: 67 Year
  Sex: Female
  Weight: 68.04 kg

DRUGS (1)
  1. REUMOFAN [Suspect]
     Indication: ARTHRITIS
     Dosage: 2 pills, two times a day, buccal
     Route: 002
     Dates: start: 20120101, end: 20120705

REACTIONS (5)
  - Weight increased [None]
  - Face oedema [None]
  - Oedema peripheral [None]
  - Adrenal gland injury [None]
  - Dysstasia [None]
